FAERS Safety Report 4690133-7 (Version None)
Quarter: 2005Q2

REPORT INFORMATION
  Report Type: 
  Country: None (occurrence: None)
  Receive Date: 20050613
  Receipt Date: 20050526
  Transmission Date: 20051028
  Serious: Yes (Death)
  Sender: FDA-Public Use
  Company Number: 214943

PATIENT
  Age: 73 Year
  Sex: Male
  Weight: 114 kg

DRUGS (1)
  1. AVASTIN [Suspect]
     Indication: COLORECTAL CANCER METASTATIC
     Dosage: 855 MG, Q3W, INTRAVENOUS
     Route: 042
     Dates: start: 20050228, end: 20050322

REACTIONS (1)
  - DEATH [None]
